FAERS Safety Report 19737854 (Version 3)
Quarter: 2021Q4

REPORT INFORMATION
  Report Type: Spontaneous
  Country: US (occurrence: US)
  Receive Date: 20210823
  Receipt Date: 20211013
  Transmission Date: 20220303
  Serious: Yes (Death)
  Sender: FDA-Public Use
  Company Number: US-PFIZER INC-2021241107

PATIENT
  Age: 73 Year
  Sex: Male
  Weight: 88.43 kg

DRUGS (2)
  1. BRAFTOVI [Suspect]
     Active Substance: ENCORAFENIB
     Indication: Gastric cancer
     Dosage: 75 MG
  2. BRAFTOVI [Suspect]
     Active Substance: ENCORAFENIB
     Indication: Gastric cancer

REACTIONS (3)
  - Neoplasm progression [Fatal]
  - Liver disorder [Unknown]
  - Off label use [Unknown]
